FAERS Safety Report 9760930 (Version 2)
Quarter: 2014Q1

REPORT INFORMATION
  Report Type: Spontaneous
  Country: US (occurrence: US)
  Receive Date: 20131216
  Receipt Date: 20140129
  Transmission Date: 20141002
  Serious: No
  Sender: FDA-Public Use
  Company Number: US-009507513-1311USA000349

PATIENT
  Age: 24 Year
  Sex: Female
  Weight: 43.8 kg

DRUGS (1)
  1. NEXPLANON [Suspect]
     Indication: CONTRACEPTION
     Dosage: 1 DF/3 YEARS
     Route: 059
     Dates: start: 201304, end: 20131022

REACTIONS (2)
  - Weight decreased [Not Recovered/Not Resolved]
  - Menorrhagia [Not Recovered/Not Resolved]
